FAERS Safety Report 4661893-6 (Version None)
Quarter: 2005Q2

REPORT INFORMATION
  Report Type: 
  Country: None (occurrence: None)
  Receive Date: 20050513
  Receipt Date: 20050315
  Transmission Date: 20051028
  Serious: Yes (Other)
  Sender: FDA-Public Use
  Company Number: US-MERCK-0503USA02551

PATIENT
  Age: 79 Year
  Sex: Female

DRUGS (3)
  1. INVANZ [Suspect]
     Indication: SEPSIS
     Route: 042
     Dates: start: 20040701, end: 20040701
  2. ROCEPHIN [Concomitant]
     Indication: PNEUMONIA
     Route: 065
  3. ANTIMICROBIAL (UNSPECIFIED) [Concomitant]
     Route: 065

REACTIONS (2)
  - CONVULSION [None]
  - RENAL FAILURE [None]
